FAERS Safety Report 6465181-7 (Version None)
Quarter: 2009Q4

REPORT INFORMATION
  Report Type: 
  Country: None (occurrence: None)
  Receive Date: 20091201
  Receipt Date: 20090501
  Transmission Date: 20100525
  Serious: No
  Sender: FDA-Public Use
  Company Number: US-AMGEN-COG345425

PATIENT
  Sex: Female

DRUGS (3)
  1. ENBREL [Suspect]
     Indication: RHEUMATOID ARTHRITIS
     Route: 058
     Dates: start: 20090209
  2. METHOTREXATE [Concomitant]
     Route: 048
  3. PREDNISONE TAB [Concomitant]

REACTIONS (10)
  - AMENORRHOEA [None]
  - BRONCHITIS [None]
  - COUGH [None]
  - DRUG HYPERSENSITIVITY [None]
  - DRY MOUTH [None]
  - DYSPNOEA [None]
  - FATIGUE [None]
  - MOOD SWINGS [None]
  - PANIC ATTACK [None]
  - RHEUMATOID ARTHRITIS [None]
